FAERS Safety Report 4706061-4 (Version None)
Quarter: 2005Q2

REPORT INFORMATION
  Report Type: 
  Country: None (occurrence: None)
  Receive Date: 20050627
  Receipt Date: 20041014
  Transmission Date: 20051028
  Serious: Yes (Other)
  Sender: FDA-Public Use
  Company Number: US-JNJFOC-20040402018

PATIENT
  Age: 50 Year
  Sex: Male

DRUGS (4)
  1. FENTANYL [Suspect]
     Indication: PAIN
     Dosage: 75 UG/HR, TRANSDERMAL
     Route: 062
     Dates: end: 20040405
  2. PERCOCET [Suspect]
     Indication: PAIN
     Dosage: , 2 IN 6 HOUR, ORAL
     Route: 048
     Dates: start: 20040317
  3. SOMA [Concomitant]
  4. RESTORIL [Concomitant]

REACTIONS (1)
  - LOSS OF CONSCIOUSNESS [None]
